FAERS Safety Report 15963638 (Version 1)
Quarter: 2019Q1

REPORT INFORMATION
  Report Type: Report from Study
  Country: US (occurrence: US)
  Receive Date: 20190214
  Receipt Date: 20190214
  Transmission Date: 20190417
  Serious: Yes (Hospitalization)
  Sender: FDA-Public Use
  Company Number: US-TEVA-2019-US-1009442

PATIENT
  Sex: Female

DRUGS (1)
  1. COPAXONE [Suspect]
     Active Substance: GLATIRAMER ACETATE
     Indication: MULTIPLE SCLEROSIS
     Route: 058
     Dates: start: 20150702, end: 20181030

REACTIONS (7)
  - Family stress [Unknown]
  - Haemorrhage [Unknown]
  - Tearfulness [Unknown]
  - Myocardial infarction [Recovering/Resolving]
  - Stress cardiomyopathy [Recovering/Resolving]
  - Agitation [Unknown]
  - Injection site haemorrhage [Unknown]
